FAERS Safety Report 5583870-3 (Version None)
Quarter: 2008Q1

REPORT INFORMATION
  Report Type: 
  Country: None (occurrence: None)
  Receive Date: 20080108
  Receipt Date: 20080102
  Transmission Date: 20080703
  Serious: Yes (Other)
  Sender: FDA-Public Use
  Company Number: US-JNJFOC-20080100644

PATIENT
  Sex: Female
  Weight: 113.4 kg

DRUGS (1)
  1. TOPAMAX [Suspect]
     Indication: ESSENTIAL TREMOR
     Route: 048

REACTIONS (2)
  - KIDNEY INFECTION [None]
  - NEPHROLITHIASIS [None]
